FAERS Safety Report 5239213-8 (Version None)
Quarter: 2007Q1

REPORT INFORMATION
  Report Type: 
  Country: None (occurrence: None)
  Receive Date: 20070212
  Receipt Date: 20070201
  Transmission Date: 20070707
  Serious: Yes (Life-Threatening, Hospitalization)
  Sender: FDA-Public Use
  Company Number: GXKR2007JP01114

PATIENT
  Age: 53 Year
  Sex: Female

DRUGS (4)
  1. CISPLATIN [Suspect]
     Indication: OVARIAN EPITHELIAL CANCER
     Dosage: 85 MG ON DAY 1, UNK
     Dates: start: 20050930
  2. PREDNISOLONE [Suspect]
     Indication: INTERSTITIAL LUNG DISEASE
     Dosage: 20 MG, UNK
     Dates: start: 20051003
  3. METHYLPREDNISOLONE [Suspect]
     Indication: INTERSTITIAL LUNG DISEASE
     Dosage: 125 MG, UNK
     Dates: start: 20051003
  4. IRINOTECAN HCL [Suspect]
     Indication: OVARIAN EPITHELIAL CANCER
     Dosage: 85 MG ON DAY 1, 8 AND 15, UNK
     Dates: start: 20050930

REACTIONS (6)
  - COLITIS [None]
  - DRUG INTERACTION [None]
  - INTERSTITIAL LUNG DISEASE [None]
  - LARGE INTESTINE PERFORATION [None]
  - NEOPLASM PROGRESSION [None]
  - WHITE BLOOD CELL COUNT INCREASED [None]
